FAERS Safety Report 15961812 (Version 3)
Quarter: 2019Q1

REPORT INFORMATION
  Report Type: Spontaneous
  Country: US (occurrence: US)
  Receive Date: 20190214
  Receipt Date: 20190329
  Transmission Date: 20190417
  Serious: Yes (Other)
  Sender: FDA-Public Use
  Company Number: US-PFIZER INC-2019053575

PATIENT
  Age: 66 Year
  Sex: Male
  Weight: 78.2 kg

DRUGS (2)
  1. DOXAZOSIN MESILATE [Suspect]
     Active Substance: DOXAZOSIN MESYLATE
     Indication: PROSTATOMEGALY
     Dosage: 2 MG, UNK
     Route: 048
  2. DOXAZOSIN MESILATE [Suspect]
     Active Substance: DOXAZOSIN MESYLATE
     Dosage: 4 MG, 1X/DAY (AT BEDTIME)
     Route: 048
     Dates: start: 2018

REACTIONS (6)
  - Sleep disorder [Unknown]
  - Cataract [Recovering/Resolving]
  - Intraocular pressure increased [Not Recovered/Not Resolved]
  - Presyncope [Recovered/Resolved]
  - Drug ineffective [Unknown]
  - Dizziness [Recovered/Resolved]

NARRATIVE: CASE EVENT DATE: 2018
